FAERS Safety Report 19172178 (Version 2)
Quarter: 2021Q2

REPORT INFORMATION
  Report Type: Spontaneous
  Country: NL (occurrence: NL)
  Receive Date: 20210423
  Receipt Date: 20210429
  Transmission Date: 20210717
  Serious: Yes (Hospitalization)
  Sender: FDA-Public Use
  Company Number: NL-TEVA-2021-NL-1902915

PATIENT
  Age: 69 Year
  Sex: Male
  Weight: 78 kg

DRUGS (5)
  1. ENALAPRIL/HYDROCHLOORTHIAZIDE TABLET 20/12,5MG / BRAND NAME NOT SPECIF [Suspect]
     Active Substance: ENALAPRIL MALEATE\HYDROCHLOROTHIAZIDE
     Indication: HYPERTENSION
     Dates: start: 2019, end: 20210218
  2. ENALAPRIL/HYDROCHLOORTHIAZIDE TABLET 20/12,5MG / BRAND NAME NOT SPECIF [Suspect]
     Active Substance: ENALAPRIL MALEATE\HYDROCHLOROTHIAZIDE
     Dates: start: 2019, end: 20210218
  3. ENALAPRIL/HYDROCHLOORTHIAZIDE TABLET 20/12,5MG / BRAND NAME NOT SPECIF [Suspect]
     Active Substance: ENALAPRIL MALEATE\HYDROCHLOROTHIAZIDE
     Dates: start: 2019, end: 20210218
  4. ENALAPRIL TABLET 20MG / BRAND NAME NOT SPECIFIED [Suspect]
     Active Substance: ENALAPRIL
     Indication: HYPERTENSION
     Dosage: UNIT DOSE :1 DOSAGE FORMS, 20 MG (MILLIGRAM),THERAPY END DATE:ASKU
     Dates: start: 20210314
  5. HYDROCHLOORTHIAZIDE TABLET 12,5MG / BRAND NAME NOT SPECIFIED [Concomitant]
     Active Substance: HYDROCHLOROTHIAZIDE
     Dosage: 12,5 MG (MILLIGRAM),THERAPY START DATE :ASKU,THERAPY END DATE :ASKU

REACTIONS (3)
  - Dizziness [Recovering/Resolving]
  - Myalgia [Recovering/Resolving]
  - Sleep disorder [Recovering/Resolving]

NARRATIVE: CASE EVENT DATE: 20190614
